FAERS Safety Report 14171395 (Version 1)
Quarter: 2017Q4

REPORT INFORMATION
  Report Type: Spontaneous
  Country: TR (occurrence: TR)
  Receive Date: 20171108
  Receipt Date: 20171108
  Transmission Date: 20180321
  Serious: Yes (Death)
  Sender: FDA-Public Use
  Company Number: TR-PFIZER INC-2017475996

PATIENT
  Age: 22 Year
  Sex: Male

DRUGS (6)
  1. RIFAMPICIN [Suspect]
     Active Substance: RIFAMPIN
     Indication: ANTHRAX
     Dosage: UNK
  2. VANCOMYCIN HCL [Suspect]
     Active Substance: VANCOMYCIN HYDROCHLORIDE
     Indication: ENCEPHALITIS
  3. PENICILLIN G /00000901/ [Suspect]
     Active Substance: PENICILLIN G
     Indication: ANTHRAX
     Dosage: UNK
  4. PENICILLIN G /00000901/ [Suspect]
     Active Substance: PENICILLIN G
     Indication: ENCEPHALITIS
  5. VANCOMYCIN HCL [Suspect]
     Active Substance: VANCOMYCIN HYDROCHLORIDE
     Indication: ANTHRAX
     Dosage: UNK
  6. RIFAMPICIN [Suspect]
     Active Substance: RIFAMPIN
     Indication: ENCEPHALITIS

REACTIONS (1)
  - Drug ineffective [Fatal]
